FAERS Safety Report 7535811-7 (Version None)
Quarter: 2011Q2

REPORT INFORMATION
  Report Type: 
  Country: None (occurrence: None)
  Receive Date: 20110609
  Receipt Date: 20110601
  Transmission Date: 20111010
  Serious: Yes (Hospitalization)
  Sender: FDA-Public Use
  Company Number: US-US-EMD SERONO, INC.-7012610

PATIENT
  Sex: Female
  Weight: 104 kg

DRUGS (3)
  1. REBIF [Suspect]
     Indication: MULTIPLE SCLEROSIS
     Route: 058
     Dates: start: 20071127
  2. METFORMIN HCL [Concomitant]
     Indication: TYPE 2 DIABETES MELLITUS
  3. HYDROCHLOROTHIAZIDE [Concomitant]
     Indication: HYPERTENSION

REACTIONS (10)
  - INJECTION SITE PAIN [None]
  - PAIN [None]
  - CORONARY ARTERY OCCLUSION [None]
  - BLOOD CHOLESTEROL INCREASED [None]
  - DYSPNOEA [None]
  - CHEST PAIN [None]
  - PERIPHERAL NERVE INJURY [None]
  - INJECTION SITE ERYTHEMA [None]
  - CHEST DISCOMFORT [None]
  - SPINAL COLUMN STENOSIS [None]
